FAERS Safety Report 7056501-3 (Version None)
Quarter: 2010Q4

REPORT INFORMATION
  Report Type: 
  Country: None (occurrence: None)
  Receive Date: 20101021
  Receipt Date: 20101011
  Transmission Date: 20110411
  Serious: Yes (Other)
  Sender: FDA-Public Use
  Company Number: FR-PFIZER INC-2010128585

PATIENT
  Age: 61 Year
  Sex: Male

DRUGS (4)
  1. LYRICA [Suspect]
     Dosage: UNK
  2. RIVOTRIL [Concomitant]
  3. ALISKIREN [Concomitant]
  4. ENDOTELON [Concomitant]

REACTIONS (3)
  - PARAESTHESIA [None]
  - PERIPHERAL COLDNESS [None]
  - SKIN INDURATION [None]
